FAERS Safety Report 15270809 (Version 1)
Quarter: 2018Q3

REPORT INFORMATION
  Report Type: Spontaneous
  Country: US (occurrence: US)
  Receive Date: 20180813
  Receipt Date: 20180813
  Transmission Date: 20181010
  Serious: No
  Sender: FDA-Public Use
  Company Number: US-SA-2018SA220653

PATIENT
  Sex: Female

DRUGS (18)
  1. ALIROCUMAB PREFILLED PEN [Suspect]
     Active Substance: ALIROCUMAB
     Indication: CEREBRAL INFARCTION
     Dosage: 150 MG, QOW
     Route: 058
  2. ZANTAC [Concomitant]
     Active Substance: RANITIDINE HYDROCHLORIDE
  3. GABAPENTINE [Concomitant]
     Active Substance: GABAPENTIN
  4. GLUCOSAMINE;TRAMADOL [Concomitant]
  5. DICYCLOMINE [DICYCLOVERINE HYDROCHLORIDE] [Concomitant]
  6. ISOSORB MONO [Concomitant]
     Active Substance: ISOSORBIDE MONONITRATE
  7. NITROFUR [Concomitant]
     Active Substance: NITROFURANTOIN
  8. ONDASETRON [ONDANSETRON] [Concomitant]
  9. RANEXA [Concomitant]
     Active Substance: RANOLAZINE
  10. CLOPIDOGREL [Concomitant]
     Active Substance: CLOPIDOGREL BISULFATE
  11. ELIQUIS [Concomitant]
     Active Substance: APIXABAN
  12. LANSOPRAZOLE. [Concomitant]
     Active Substance: LANSOPRAZOLE
  13. SMZ?TMP DS [Concomitant]
     Active Substance: SULFAMETHOXAZOLE\TRIMETHOPRIM
  14. LANTUS [Concomitant]
     Active Substance: INSULIN GLARGINE
  15. NOVOLOG [Concomitant]
     Active Substance: INSULIN ASPART
  16. PRALUENT [Suspect]
     Active Substance: ALIROCUMAB
     Indication: CEREBRAL INFARCTION
     Dosage: 150 MG, QOW
     Route: 058
  17. CARVEDILOL. [Concomitant]
     Active Substance: CARVEDILOL
  18. POLYETHYLENE GLYCOL [Concomitant]
     Active Substance: POLYETHYLENE GLYCOLS

REACTIONS (1)
  - Urinary tract infection [Not Recovered/Not Resolved]
